FAERS Safety Report 6049007-1 (Version None)
Quarter: 2009Q1

REPORT INFORMATION
  Report Type: 
  Country: None (occurrence: None)
  Receive Date: 20090123
  Receipt Date: 20090119
  Transmission Date: 20090719
  Serious: Yes (Other)
  Sender: FDA-Public Use
  Company Number: US-ELI_LILLY_AND_COMPANY-US200901003017

PATIENT
  Sex: Female

DRUGS (6)
  1. BYETTA [Suspect]
     Indication: DIABETES MELLITUS
     Dosage: 5 UG, 2/D
     Route: 058
     Dates: start: 20050101
  2. NOVOLOG [Concomitant]
     Indication: DIABETES MELLITUS
     Dosage: UNK, UNKNOWN
  3. CLONIDINE HCL [Concomitant]
     Indication: BLOOD PRESSURE
     Dosage: 0.3 MG, 2/D
  4. ATENOLOL [Concomitant]
     Dosage: 100 MG, 2/D
  5. COZAAR [Concomitant]
     Dosage: 100 MG, DAILY (1/D)
  6. AGGRENOX [Concomitant]
     Indication: ANTIPLATELET THERAPY
     Dosage: UNK, 2/D

REACTIONS (1)
  - CEREBROVASCULAR ACCIDENT [None]
